FAERS Safety Report 8933561 (Version 2)
Quarter: 2013Q1

REPORT INFORMATION
  Report Type: Spontaneous
  Country: US (occurrence: US)
  Receive Date: 20121128
  Receipt Date: 20130228
  Transmission Date: 20140127
  Serious: No
  Sender: FDA-Public Use
  Company Number: US-ABBOTT-12P-163-0999714-00

PATIENT
  Age: 70 Year
  Sex: Male
  Weight: 65.83 kg

DRUGS (1)
  1. ANDROGEL [Suspect]
     Indication: PRODUCT USED FOR UNKNOWN INDICATION
     Dosage: 1 PUMP
     Dates: start: 20121017

REACTIONS (1)
  - Urticaria [Not Recovered/Not Resolved]
